FAERS Safety Report 7474621-6 (Version None)
Quarter: 2011Q2

REPORT INFORMATION
  Report Type: 
  Country: None (occurrence: None)
  Receive Date: 20110503
  Receipt Date: 20110419
  Transmission Date: 20111010
  Serious: Yes (Hospitalization)
  Sender: FDA-Public Use
  Company Number: GER/GER/11/0018106

PATIENT
  Age: 74 Year
  Sex: Female
  Weight: 73 kg

DRUGS (11)
  1. PANTOPRAZOLE SODIUM [Suspect]
     Indication: PROPHYLAXIS AGAINST GASTROINTESTINAL ULCER
     Dosage: 40 MG, 1 IN 1 D, INTRAVENOUS
     Route: 042
     Dates: start: 20100120, end: 20100120
  2. PANTOPRAZOL (PANTOPRAZOLE SODIUM) [Concomitant]
  3. ZOFRAN [Concomitant]
  4. DIMENHYDRINATE [Concomitant]
  5. ARCOXIA [Concomitant]
  6. PRADAXA [Suspect]
     Indication: THROMBOSIS PROPHYLAXIS
     Dosage: 110 MG, 1 IN 1 D, ORAL
     Route: 048
     Dates: start: 20100120, end: 20100120
  7. TRAMAL LONG (TRAMADOL) [Concomitant]
  8. OMEPRAZOLE [Suspect]
     Indication: PROPHYLAXIS AGAINST GASTROINTESTINAL ULCER
     Dosage: 40 MG, 1 IN 1 D, ORAL
     Route: 048
     Dates: end: 20100203
  9. BERLOSIN (METAMIZOLE SODIUM) [Concomitant]
  10. DIPIDOLOR (PIPITRAMIDE) [Concomitant]
  11. DORMO-PUREN (NITRAZEPAM) [Concomitant]

REACTIONS (3)
  - TACHYCARDIA [None]
  - PULMONARY EMBOLISM [None]
  - TREATMENT FAILURE [None]
